FAERS Safety Report 26087220 (Version 1)
Quarter: 2025Q4

REPORT INFORMATION
  Report Type: Spontaneous
  Country: US (occurrence: None)
  Receive Date: 20251124
  Receipt Date: 20251124
  Transmission Date: 20260118
  Serious: Yes (Death)
  Sender: FDA-CTU
  Company Number: None

PATIENT
  Age: 37 Year
  Sex: Female
  Weight: 59.42 kg

DRUGS (11)
  1. ZENPEP [Suspect]
     Active Substance: PANCRELIPASE AMYLASE\PANCRELIPASE LIPASE\PANCRELIPASE PROTEASE
     Indication: Cystic fibrosis
     Dosage: 5 CAPSULES TID  ORAL??3  CAPSULES THREE  TIMES DAILY ORAL
     Route: 048
     Dates: start: 20230207
  2. TRIKAFTA [Concomitant]
     Active Substance: ELEXACAFTOR\IVACAFTOR\TEZACAFTOR
  3. TRINTELLIX [Concomitant]
     Active Substance: VORTIOXETINE HYDROBROMIDE
  4. TRESIBA [Concomitant]
     Active Substance: INSULIN DEGLUDEC
  5. TRAZODONE [Concomitant]
     Active Substance: TRAZODONE HYDROCHLORIDE
  6. SODIUM CHLORIDE 7% NEB SOLUTION [Concomitant]
  7. NVOLOG FLEXPEN [Concomitant]
  8. LEVOTHYROXINE [Concomitant]
     Active Substance: LEVOTHYROXINE
  9. DESVENLAFAXINE SUCCINATE [Concomitant]
     Active Substance: DESVENLAFAXINE SUCCINATE
  10. AZITHROMYCIN [Concomitant]
     Active Substance: AZITHROMYCIN
  11. ATENOLOL [Concomitant]
     Active Substance: ATENOLOL

REACTIONS (1)
  - Death [None]

NARRATIVE: CASE EVENT DATE: 20251114
